FAERS Safety Report 25859703 (Version 1)
Quarter: 2025Q3

REPORT INFORMATION
  Report Type: Spontaneous
  Country: US (occurrence: None)
  Receive Date: 20250926
  Receipt Date: 20250926
  Transmission Date: 20251021
  Serious: Yes (Life-Threatening, Hospitalization)
  Sender: FDA-CTU
  Company Number: None

PATIENT
  Age: 19 Year
  Sex: Male
  Weight: 103.8 kg

DRUGS (1)
  1. DUPIXENT [Suspect]
     Active Substance: DUPILUMAB
     Indication: Dermatitis atopic
     Route: 058
     Dates: start: 20250311, end: 20250807

REACTIONS (12)
  - Peripheral swelling [None]
  - Swelling [None]
  - Dysphonia [None]
  - Tachycardia [None]
  - Blood pressure increased [None]
  - Mediastinal mass [None]
  - Pleural effusion [None]
  - Tracheal compression [None]
  - Subclavian artery occlusion [None]
  - Vascular compression [None]
  - Jugular vein occlusion [None]
  - T-cell type acute leukaemia [None]

NARRATIVE: CASE EVENT DATE: 20250912
